FAERS Safety Report 25428817 (Version 3)
Quarter: 2025Q3

REPORT INFORMATION
  Report Type: Spontaneous
  Country: US (occurrence: US)
  Receive Date: 20250612
  Receipt Date: 20250721
  Transmission Date: 20251021
  Serious: No
  Sender: MYLAN
  Company Number: US-MYLANLABS-2025M1046064

PATIENT
  Sex: Female
  Weight: 44.9 kg

DRUGS (4)
  1. BREYNA [Suspect]
     Active Substance: BUDESONIDE\FORMOTEROL FUMARATE
     Indication: Chronic obstructive pulmonary disease
     Dosage: 160/9 MICROGRAM, BID (2 SPRAYS IN THE MORNING AND 2 SPRAYS IN THE NIGHT)
  2. BREYNA [Suspect]
     Active Substance: BUDESONIDE\FORMOTEROL FUMARATE
     Dosage: 160/9 MICROGRAM, BID (2 SPRAYS IN THE MORNING AND 2 SPRAYS IN THE NIGHT)
     Route: 055
  3. BREYNA [Suspect]
     Active Substance: BUDESONIDE\FORMOTEROL FUMARATE
     Dosage: 160/9 MICROGRAM, BID (2 SPRAYS IN THE MORNING AND 2 SPRAYS IN THE NIGHT)
     Route: 055
  4. BREYNA [Suspect]
     Active Substance: BUDESONIDE\FORMOTEROL FUMARATE
     Dosage: 160/9 MICROGRAM, BID (2 SPRAYS IN THE MORNING AND 2 SPRAYS IN THE NIGHT)

REACTIONS (3)
  - Wrong technique in device usage process [Unknown]
  - Product use complaint [Unknown]
  - Device delivery system issue [Unknown]
